FAERS Safety Report 19985619 (Version 3)
Quarter: 2021Q4

REPORT INFORMATION
  Report Type: Spontaneous
  Country: US (occurrence: US)
  Receive Date: 20211022
  Receipt Date: 20211216
  Transmission Date: 20220303
  Serious: Yes (Disabling)
  Sender: FDA-Public Use
  Company Number: US-CELGENE-USA-20211004254

PATIENT
  Sex: Female
  Weight: 65.376 kg

DRUGS (6)
  1. ZEPOSIA [Suspect]
     Active Substance: OZANIMOD HYDROCHLORIDE
     Indication: Colitis ulcerative
     Dosage: .92 MILLIGRAM
     Route: 048
     Dates: start: 20210922, end: 20211103
  2. ZEPOSIA [Suspect]
     Active Substance: OZANIMOD HYDROCHLORIDE
     Indication: Multiple sclerosis
  3. MESALAMINE [Concomitant]
     Active Substance: MESALAMINE
     Indication: Colitis ulcerative
     Dosage: 1.5 MILLIGRAM
     Route: 048
     Dates: start: 20210701
  4. BUDESONIDE [Concomitant]
     Active Substance: BUDESONIDE
     Indication: Colitis ulcerative
     Dosage: 9 MILLIGRAM
     Route: 048
     Dates: start: 20210701
  5. VITAMIN B [Concomitant]
     Active Substance: VITAMIN B
     Indication: Vitamin B12 deficiency
     Route: 065
  6. VITANOL [Concomitant]
     Indication: Anaemia
     Dosage: 65-125 MG
     Route: 065

REACTIONS (3)
  - Blood pressure fluctuation [Recovering/Resolving]
  - Headache [Unknown]
  - Eye disorder [Unknown]

NARRATIVE: CASE EVENT DATE: 20210101
